FAERS Safety Report 6790950-3 (Version None)
Quarter: 2010Q2

REPORT INFORMATION
  Report Type: 
  Country: None (occurrence: None)
  Receive Date: 20100623
  Receipt Date: 20100623
  Transmission Date: 20101027
  Serious: Yes (Life-Threatening, Hospitalization)
  Sender: FDA-Public Use
  Company Number: None

PATIENT
  Sex: Female

DRUGS (1)
  1. BENICAR HCT [Suspect]
     Dates: start: 20090820

REACTIONS (2)
  - SWOLLEN TONGUE [None]
  - TOOTH EXTRACTION [None]
